FAERS Safety Report 19972666 (Version 1)
Quarter: 2021Q4

REPORT INFORMATION
  Report Type: Spontaneous
  Country: JP (occurrence: JP)
  Receive Date: 20211019
  Receipt Date: 20211019
  Transmission Date: 20220303
  Serious: Yes (Other)
  Sender: FDA-Public Use
  Company Number: JP-KOWA-21JP003407

PATIENT
  Sex: Male

DRUGS (2)
  1. PEMAFIBRATE [Suspect]
     Active Substance: PEMAFIBRATE
     Indication: Product used for unknown indication
     Dosage: 0.1 MG, BID
     Route: 048
     Dates: start: 2019, end: 20211011
  2. LIVALO [Suspect]
     Active Substance: PITAVASTATIN CALCIUM
     Indication: Product used for unknown indication
     Dosage: 2 MG, QD
     Route: 048

REACTIONS (4)
  - Bradycardia [Not Recovered/Not Resolved]
  - Musculoskeletal stiffness [Not Recovered/Not Resolved]
  - Hypoaesthesia [Not Recovered/Not Resolved]
  - Blood creatine phosphokinase increased [Not Recovered/Not Resolved]

NARRATIVE: CASE EVENT DATE: 20200701
